FAERS Safety Report 7724478-0 (Version None)
Quarter: 2011Q3

REPORT INFORMATION
  Report Type: 
  Country: None (occurrence: None)
  Receive Date: 20110901
  Receipt Date: 20110824
  Transmission Date: 20111222
  Serious: Yes (Other)
  Sender: FDA-Public Use
  Company Number: US-GLAXOSMITHKLINE-A0942919A

PATIENT
  Age: 77 Year
  Sex: Female
  Weight: 52.3 kg

DRUGS (4)
  1. VALTREX [Suspect]
     Route: 048
  2. TOVIAZ [Suspect]
     Indication: INCONTINENCE
     Dosage: 8MG PER DAY
     Route: 048
     Dates: start: 20100601
  3. ENABLEX [Concomitant]
     Dates: end: 20091101
  4. RESTASIS [Concomitant]
     Indication: DRY EYE

REACTIONS (14)
  - CARDIAC VALVE DISEASE [None]
  - ILL-DEFINED DISORDER [None]
  - DRUG INEFFECTIVE [None]
  - DRUG EFFECT DECREASED [None]
  - CARDIAC DISORDER [None]
  - SLEEP DISORDER [None]
  - EMOTIONAL DISTRESS [None]
  - PRODUCT QUALITY ISSUE [None]
  - DEAFNESS [None]
  - ADVERSE EVENT [None]
  - MALAISE [None]
  - WRONG TECHNIQUE IN DRUG USAGE PROCESS [None]
  - INCONTINENCE [None]
  - SKIN DISORDER [None]
